FAERS Safety Report 17755297 (Version 1)
Quarter: 2020Q2

REPORT INFORMATION
  Report Type: Report from Study
  Country: IT (occurrence: IT)
  Receive Date: 20200507
  Receipt Date: 20200507
  Transmission Date: 20200714
  Serious: Yes (Other)
  Sender: FDA-Public Use
  Company Number: IT-MYLANLABS-2020M1044972

PATIENT
  Age: 27 Year
  Sex: Female

DRUGS (3)
  1. KETOPROFEN. [Suspect]
     Active Substance: KETOPROFEN
     Indication: TOOTHACHE
     Dosage: 5 DOSAGE FORM, QD
     Route: 048
     Dates: start: 20191226, end: 20200109
  2. NIMESULIDE [Suspect]
     Active Substance: NIMESULIDE
     Indication: TOOTHACHE
     Dosage: 1 DOSAGE FORM, QD
     Route: 048
     Dates: start: 20191226, end: 20200109
  3. ENANTYUM [Suspect]
     Active Substance: DEXKETOPROFEN TROMETAMOL
     Indication: TOOTHACHE
     Dosage: 1 DOSAGE FORM, QD
     Route: 048
     Dates: start: 20191226, end: 20200109

REACTIONS (2)
  - Drug abuse [Recovering/Resolving]
  - Gastritis [Recovering/Resolving]

NARRATIVE: CASE EVENT DATE: 20200109
